FAERS Safety Report 4475472-7 (Version None)
Quarter: 2004Q4

REPORT INFORMATION
  Report Type: 
  Country: None (occurrence: None)
  Receive Date: 20041014
  Receipt Date: 20041014
  Transmission Date: 20050328
  Serious: No
  Sender: FDA-Public Use
  Company Number: None

PATIENT
  Age: 35 Year
  Sex: Female
  Weight: 93.441 kg

DRUGS (1)
  1. CELEBREX [Suspect]
     Dosage: BID PRN

REACTIONS (4)
  - ARTHRALGIA [None]
  - HYPERSENSITIVITY [None]
  - OROPHARYNGEAL SWELLING [None]
  - URTICARIA [None]
